FAERS Safety Report 10791807 (Version 2)
Quarter: 2015Q1

REPORT INFORMATION
  Report Type: Spontaneous
  Country: GB (occurrence: GB)
  Receive Date: 20150213
  Receipt Date: 20150226
  Transmission Date: 20150721
  Serious: Yes (Life-Threatening, Hospitalization, Disabling, Other)
  Sender: FDA-Public Use
  Company Number: GB-ROCHE-1518814

PATIENT
  Age: 54 Year
  Sex: Female
  Weight: 71 kg

DRUGS (11)
  1. TOCILIZUMAB [Suspect]
     Active Substance: TOCILIZUMAB
     Dosage: 8 MG /KG
     Route: 042
     Dates: start: 20130816
  2. TOCILIZUMAB [Suspect]
     Active Substance: TOCILIZUMAB
     Dosage: 8 MG /KG
     Route: 042
     Dates: start: 20140110
  3. TOCILIZUMAB [Suspect]
     Active Substance: TOCILIZUMAB
     Dosage: 8 MG /KG
     Route: 042
     Dates: start: 20130614
  4. TRAMADOL [Concomitant]
     Active Substance: TRAMADOL
     Route: 048
  5. TOCILIZUMAB [Suspect]
     Active Substance: TOCILIZUMAB
     Dosage: 8 MG /KG
     Route: 042
     Dates: start: 20130719
  6. TOCILIZUMAB [Suspect]
     Active Substance: TOCILIZUMAB
     Dosage: 8 MG /KG
     Route: 042
     Dates: start: 20131018
  7. TOCILIZUMAB [Suspect]
     Active Substance: TOCILIZUMAB
     Dosage: 8 MG /KG
     Route: 042
     Dates: start: 20131129
  8. TOCILIZUMAB [Suspect]
     Active Substance: TOCILIZUMAB
     Indication: RHEUMATOID ARTHRITIS
     Dosage: 8 MG /KG
     Route: 042
     Dates: start: 20130412
  9. TOCILIZUMAB [Suspect]
     Active Substance: TOCILIZUMAB
     Dosage: 8 MG /KG
     Route: 042
     Dates: start: 20130920
  10. TOCILIZUMAB [Suspect]
     Active Substance: TOCILIZUMAB
     Dosage: 8 MG /KG
     Route: 042
     Dates: start: 20130517
  11. METHOTREXATE [Concomitant]
     Active Substance: METHOTREXATE
     Indication: RHEUMATOID ARTHRITIS
     Dosage: STOPPED INTERMITTENTLY
     Route: 058
     Dates: start: 2006

REACTIONS (10)
  - Large intestinal stenosis [Unknown]
  - Diarrhoea [Unknown]
  - Cyst [Unknown]
  - Haemoptysis [Unknown]
  - Diverticulum intestinal [Unknown]
  - Aspergilloma [Recovered/Resolved with Sequelae]
  - Pyrexia [Unknown]
  - Abdominal pain [Unknown]
  - Emphysema [Unknown]
  - Weight decreased [Unknown]

NARRATIVE: CASE EVENT DATE: 20140611
